FAERS Safety Report 23327988 (Version 1)
Quarter: 2023Q4

REPORT INFORMATION
  Report Type: Spontaneous
  Country: US (occurrence: US)
  Receive Date: 20231221
  Receipt Date: 20231221
  Transmission Date: 20240110
  Serious: No
  Sender: FDA-Public Use
  Company Number: US-PERRIGO-23US013744

PATIENT
  Age: 61 Year
  Sex: Male
  Weight: 87.075 kg

DRUGS (2)
  1. NASONEX [Suspect]
     Active Substance: MOMETASONE FUROATE
     Indication: Seasonal allergy
     Dosage: 100 MCG IN EACH NOSTRIL, QAM
     Route: 045
     Dates: start: 20231115, end: 20231116
  2. NASONEX [Suspect]
     Active Substance: MOMETASONE FUROATE
     Dosage: 50 MCG IN EACH NOSTRIL, QAM
     Route: 045
     Dates: start: 20231117, end: 20231129

REACTIONS (3)
  - Drug ineffective [Unknown]
  - Underdose [Unknown]
  - Incorrect product administration duration [Unknown]

NARRATIVE: CASE EVENT DATE: 20231115
